FAERS Safety Report 12591888 (Version 1)
Quarter: 2016Q3

REPORT INFORMATION
  Report Type: Spontaneous
  Country: US (occurrence: None)
  Receive Date: 20160725
  Receipt Date: 20160725
  Transmission Date: 20161109
  Serious: Yes (Other)
  Sender: FDA-Public Use
  Company Number: None

PATIENT
  Age: 41 Year
  Sex: Male
  Weight: 81.65 kg

DRUGS (1)
  1. RESTASIS [Suspect]
     Active Substance: CYCLOSPORINE
     Indication: DRY EYE
     Route: 047
     Dates: end: 20160617

REACTIONS (7)
  - Eye pain [None]
  - Eyelid irritation [None]
  - Eyelid pain [None]
  - Eye irritation [None]
  - Erythema [None]
  - Ocular hyperaemia [None]
  - Skin irritation [None]

NARRATIVE: CASE EVENT DATE: 20160414
